FAERS Safety Report 8998972 (Version 1)
Quarter: 2013Q1

REPORT INFORMATION
  Report Type: Spontaneous
  Country: US (occurrence: US)
  Receive Date: 20130103
  Receipt Date: 20130103
  Transmission Date: 20140127
  Serious: No
  Sender: FDA-Public Use
  Company Number: US-PFIZER INC-2012332667

PATIENT
  Age: 56 Year
  Sex: Female
  Weight: 179 kg

DRUGS (14)
  1. SKELAXIN [Suspect]
     Indication: MUSCLE SPASMS
     Dosage: 800 MG, UNK
     Route: 048
  2. LYRICA [Suspect]
     Indication: PAIN IN EXTREMITY
     Dosage: 75 MG, 2X/DAY
     Route: 048
  3. GLUCOTROL [Suspect]
     Indication: DIABETES MELLITUS
     Dosage: 10 MG, 2X/DAY
     Route: 048
  4. EFFEXOR [Suspect]
     Indication: ANXIETY
     Dosage: 75 MG, UNK
     Route: 048
  5. EFFEXOR [Suspect]
     Indication: DEPRESSION
  6. OXYCODONE [Concomitant]
     Dosage: UNK
  7. ALBUTEROL [Concomitant]
     Indication: ASTHMA
     Dosage: UNK
  8. IBUPROFEN [Concomitant]
     Dosage: UNK
  9. METOPROLOL [Concomitant]
     Dosage: UNK
  10. LORAZEPAM [Concomitant]
     Dosage: UNK
  11. LISINOPRIL [Concomitant]
     Dosage: UNK
  12. VENTOLIN [Concomitant]
     Indication: ASTHMA
     Dosage: UNK
  13. FLOVENT [Concomitant]
     Indication: ASTHMA
     Dosage: UNK
  14. SYMBICORT [Concomitant]
     Indication: ASTHMA
     Dosage: UNK

REACTIONS (1)
  - Viral infection [Unknown]
